FAERS Safety Report 7463611-5 (Version None)
Quarter: 2011Q1

REPORT INFORMATION
  Report Type: 
  Country: None (occurrence: None)
  Receive Date: 20110302
  Receipt Date: 20101014
  Transmission Date: 20110831
  Serious: Yes (Hospitalization)
  Sender: FDA-Public Use
  Company Number: 163-21880-10063079

PATIENT
  Age: 70 Year
  Sex: Male
  Weight: 117.028 kg

DRUGS (2)
  1. REVLIMID [Suspect]
     Indication: MULTIPLE MYELOMA
     Dosage: 25 MG, DAYS 1-21, PO
     Route: 048
     Dates: start: 20091117, end: 20100519
  2. DECADRON [Concomitant]

REACTIONS (3)
  - CELLULITIS [None]
  - PLATELET COUNT DECREASED [None]
  - HYPOGAMMAGLOBULINAEMIA [None]
